FAERS Safety Report 18531148 (Version 2)
Quarter: 2020Q4

REPORT INFORMATION
  Report Type: Report from Study
  Country: SG (occurrence: SG)
  Receive Date: 20201122
  Receipt Date: 20201126
  Transmission Date: 20210114
  Serious: No
  Sender: FDA-Public Use
  Company Number: NVSC2020SG305118

PATIENT
  Age: 53 Year
  Sex: Male

DRUGS (1)
  1. CYCLOSPORINE. [Suspect]
     Active Substance: CYCLOSPORINE
     Indication: ANKYLOSING SPONDYLITIS
     Dosage: UNK UNK, QW
     Route: 048

REACTIONS (5)
  - Product use in unapproved indication [Unknown]
  - Skin atrophy [Unknown]
  - Skin haemorrhage [Unknown]
  - Fatigue [Unknown]
  - Skin injury [Unknown]
